FAERS Safety Report 24564026 (Version 2)
Quarter: 2024Q4

REPORT INFORMATION
  Report Type: Report from Study
  Country: CL (occurrence: CL)
  Receive Date: 20241030
  Receipt Date: 20241105
  Transmission Date: 20250114
  Serious: Yes (Other)
  Sender: JOHNSON AND JOHNSON
  Company Number: CL-BAYER-2024A152519

PATIENT
  Age: 47 Year
  Sex: Female

DRUGS (7)
  1. VENTAVIS [Suspect]
     Active Substance: ILOPROST
     Indication: Product use in unapproved indication
     Dosage: 1ML EVERY 4 HOURS
     Route: 055
     Dates: start: 202110
  2. VENTAVIS [Suspect]
     Active Substance: ILOPROST
     Dosage: STARTED WITH 2 NEBULIZATIONS FIRST
     Route: 055
  3. AMBRISENTAN [Concomitant]
     Active Substance: AMBRISENTAN
     Dosage: UNKNOWN
     Dates: start: 20190414
  4. TADALAFIL [Concomitant]
     Active Substance: TADALAFIL
     Dosage: UNKNOWN
     Dates: start: 2024
  5. VIAGRA [Concomitant]
     Active Substance: SILDENAFIL CITRATE
     Dosage: UNKNOWN
     Dates: start: 201502
  6. FLUTICASONE FUROATE\VILANTEROL TRIFENATATE [Concomitant]
     Active Substance: FLUTICASONE FUROATE\VILANTEROL TRIFENATATE
     Dosage: UNKNOWN
  7. ATROVENT [Concomitant]
     Active Substance: IPRATROPIUM BROMIDE
     Dosage: UNKNOWN

REACTIONS (13)
  - Syncope [Unknown]
  - Loss of personal independence in daily activities [Not Recovered/Not Resolved]
  - Quality of life decreased [Unknown]
  - Erythema [Unknown]
  - Skin exfoliation [Unknown]
  - Oropharyngeal pain [Unknown]
  - Blood pressure decreased [Unknown]
  - Vomiting [Unknown]
  - Headache [Unknown]
  - Nausea [Unknown]
  - Drug intolerance [Not Recovered/Not Resolved]
  - Inappropriate schedule of product administration [Not Recovered/Not Resolved]
  - Product use in unapproved indication [Unknown]

NARRATIVE: CASE EVENT DATE: 20211001
